FAERS Safety Report 11818128 (Version 4)
Quarter: 2017Q1

REPORT INFORMATION
  Report Type: Spontaneous
  Country: US (occurrence: US)
  Receive Date: 20151210
  Receipt Date: 20170116
  Transmission Date: 20170428
  Serious: No
  Sender: FDA-Public Use
  Company Number: US-JNJFOC-20151013048

PATIENT
  Age: 4 Year
  Sex: Male
  Weight: 61.24 kg

DRUGS (16)
  1. RISPERDAL [Suspect]
     Active Substance: RISPERIDONE
     Indication: AUTISM
     Route: 048
     Dates: start: 2011
  2. RISPERDAL [Suspect]
     Active Substance: RISPERIDONE
     Indication: ABNORMAL BEHAVIOUR
     Route: 048
     Dates: start: 2011
  3. RISPERDAL [Suspect]
     Active Substance: RISPERIDONE
     Indication: ABNORMAL BEHAVIOUR
     Route: 048
     Dates: end: 201007
  4. SEROQUEL [Suspect]
     Active Substance: QUETIAPINE FUMARATE
     Indication: AGGRESSION
     Route: 065
     Dates: start: 2010, end: 2011
  5. ABILIFY [Concomitant]
     Active Substance: ARIPIPRAZOLE
     Route: 065
     Dates: start: 2008
  6. RISPERDAL [Suspect]
     Active Substance: RISPERIDONE
     Indication: AUTISM
     Route: 048
     Dates: start: 2004, end: 2009
  7. RISPERDAL [Suspect]
     Active Substance: RISPERIDONE
     Indication: DEVELOPMENTAL DELAY
     Route: 048
     Dates: start: 2011
  8. RISPERDAL [Suspect]
     Active Substance: RISPERIDONE
     Indication: DEVELOPMENTAL DELAY
     Route: 048
     Dates: start: 2004, end: 2009
  9. SEROQUEL [Suspect]
     Active Substance: QUETIAPINE FUMARATE
     Indication: AGGRESSION
     Route: 065
     Dates: start: 2011
  10. RISPERIDONE. [Suspect]
     Active Substance: RISPERIDONE
     Indication: PRODUCT USED FOR UNKNOWN INDICATION
     Route: 048
  11. RISPERDAL [Suspect]
     Active Substance: RISPERIDONE
     Indication: ABNORMAL BEHAVIOUR
     Route: 048
     Dates: start: 2004, end: 2009
  12. SEROQUEL [Suspect]
     Active Substance: QUETIAPINE FUMARATE
     Indication: DRUG THERAPY
     Route: 065
     Dates: start: 2011
  13. RISPERDAL [Suspect]
     Active Substance: RISPERIDONE
     Indication: AUTISM
     Route: 048
     Dates: end: 201007
  14. RISPERDAL [Suspect]
     Active Substance: RISPERIDONE
     Indication: DEVELOPMENTAL DELAY
     Route: 048
     Dates: end: 201007
  15. RISPERDAL [Suspect]
     Active Substance: RISPERIDONE
     Indication: PRODUCT USED FOR UNKNOWN INDICATION
     Route: 048
  16. SEROQUEL [Suspect]
     Active Substance: QUETIAPINE FUMARATE
     Indication: DRUG THERAPY
     Route: 065
     Dates: start: 2010, end: 2011

REACTIONS (3)
  - Emotional disorder [Unknown]
  - Abnormal weight gain [Unknown]
  - Gynaecomastia [Unknown]

NARRATIVE: CASE EVENT DATE: 200506
